FAERS Safety Report 15224763 (Version 4)
Quarter: 2019Q1

REPORT INFORMATION
  Report Type: Spontaneous
  Country: JP (occurrence: JP)
  Receive Date: 20180731
  Receipt Date: 20190101
  Transmission Date: 20190417
  Serious: Yes (Death, Hospitalization, Other)
  Sender: FDA-Public Use
  Company Number: JP-AMGEN-JPNSP2018103954

PATIENT
  Age: 75 Year
  Sex: Male
  Weight: 54.5 kg

DRUGS (3)
  1. KYPROLIS [Suspect]
     Active Substance: CARFILZOMIB
     Indication: PLASMA CELL MYELOMA
     Dosage: 30 MG, EVERYDAY
     Route: 041
     Dates: start: 20180710, end: 20180711
  2. KYPROLIS [Suspect]
     Active Substance: CARFILZOMIB
     Dosage: 90 MG, EVERYDAY
     Route: 041
     Dates: start: 20180717, end: 20180718
  3. LENADEX [Concomitant]
     Active Substance: DEXAMETHASONE ACETATE
     Indication: PLASMA CELL MYELOMA
     Dosage: 20 MG, EVERYDAY
     Route: 048
     Dates: start: 20180710, end: 20180718

REACTIONS (6)
  - Pneumonia [Fatal]
  - Disseminated intravascular coagulation [Fatal]
  - Tumour lysis syndrome [Fatal]
  - Sepsis [Fatal]
  - Hypercalcaemia [Not Recovered/Not Resolved]
  - Pulmonary haemorrhage [Fatal]

NARRATIVE: CASE EVENT DATE: 20180711
